FAERS Safety Report 11394176 (Version 1)
Quarter: 2015Q3

REPORT INFORMATION
  Report Type: Report from Study
  Country: JP (occurrence: JP)
  Receive Date: 20150819
  Receipt Date: 20150819
  Transmission Date: 20151125
  Serious: Yes (Hospitalization)
  Sender: FDA-Public Use
  Company Number: JP-ROCHE-1623280

PATIENT
  Age: 78 Year
  Sex: Male
  Weight: 40 kg

DRUGS (16)
  1. TOCILIZUMAB [Suspect]
     Active Substance: TOCILIZUMAB
     Indication: RHEUMATOID ARTHRITIS
     Dosage: DOSAGE UNCERTAIN.
     Route: 041
     Dates: start: 20130606, end: 20131106
  2. TOCILIZUMAB [Suspect]
     Active Substance: TOCILIZUMAB
     Indication: RHEUMATOID ARTHRITIS
  3. PREDNISOLONE. [Concomitant]
     Active Substance: PREDNISOLONE
     Indication: RHEUMATOID ARTHRITIS
     Route: 048
  4. FOLIAMIN [Concomitant]
     Active Substance: FOLIC ACID
     Indication: RHEUMATOID ARTHRITIS
     Dosage: DOSAGE UNCERTAIN.
     Route: 048
  5. MOHRUS TAPE [Concomitant]
     Active Substance: KETOPROFEN
     Indication: RHEUMATOID ARTHRITIS
     Dosage: DOSAGE UNCERTAIN.
     Route: 061
  6. TAKEPRON [Concomitant]
     Active Substance: LANSOPRAZOLE
     Indication: PROPHYLAXIS
     Dosage: DOSAGE UNCERTAIN.
     Route: 048
  7. DEPAS [Concomitant]
     Active Substance: ETIZOLAM
     Dosage: DOSAGE UNCERTAIN.
     Route: 048
  8. METHOTREXATE [Concomitant]
     Active Substance: METHOTREXATE
     Indication: RHEUMATOID ARTHRITIS
     Route: 048
  9. LENDORMIN [Concomitant]
     Active Substance: BROTIZOLAM
     Route: 048
  10. TOCILIZUMAB [Suspect]
     Active Substance: TOCILIZUMAB
     Route: 058
     Dates: start: 20140205, end: 20140205
  11. HYPEN (JAPAN) [Concomitant]
     Indication: RHEUMATOID ARTHRITIS
     Dosage: DOSAGE UNCERTAIN.
     Route: 048
  12. BAKTAR [Concomitant]
     Active Substance: SULFAMETHOXAZOLE\TRIMETHOPRIM
     Indication: PROPHYLAXIS
     Dosage: DOSAGE UNCERTAIN.
     Route: 048
  13. TOCILIZUMAB [Suspect]
     Active Substance: TOCILIZUMAB
     Indication: RHEUMATOID ARTHRITIS
  14. TOCILIZUMAB [Suspect]
     Active Substance: TOCILIZUMAB
     Indication: RHEUMATOID ARTHRITIS
     Route: 058
     Dates: start: 20131204, end: 20131204
  15. EDIROL [Concomitant]
     Active Substance: ELDECALCITOL
     Indication: OSTEOPOROSIS
     Route: 048
  16. BIOFERMIN R [Concomitant]
     Active Substance: BACILLUS SUBTILIS\LACTOBACILLUS ACIDOPHILUS\STREPTOCOCCUS FAECAIS
     Dosage: DOSAGE UNCERTAIN.
     Route: 048

REACTIONS (1)
  - Gastric cancer [Recovering/Resolving]

NARRATIVE: CASE EVENT DATE: 20140401
